FAERS Safety Report 18339622 (Version 2)
Quarter: 2020Q4

REPORT INFORMATION
  Report Type: Report from Study
  Country: HK (occurrence: HK)
  Receive Date: 20201002
  Receipt Date: 20201007
  Transmission Date: 20210113
  Serious: Yes (Hospitalization)
  Sender: FDA-Public Use
  Company Number: HK-009507513-2010HKG000015

PATIENT
  Age: 44 Year
  Sex: Female
  Weight: 69 kg

DRUGS (14)
  1. TACROLIMUS. [Suspect]
     Active Substance: TACROLIMUS
     Dosage: 1 APPLICATION, QD
     Route: 061
     Dates: start: 20191028, end: 20200818
  2. MOMETASONE FUROATE. [Suspect]
     Active Substance: MOMETASONE FUROATE
     Indication: DERMATITIS ATOPIC
     Dosage: 1 APPLICATION, 1 DAY
     Route: 061
     Dates: start: 20190708, end: 20190902
  3. HYDROCORTISONE ACETATE. [Suspect]
     Active Substance: HYDROCORTISONE ACETATE
     Indication: DERMATITIS ATOPIC
     Dosage: 2 APPLICATION,IN 1 DAY
     Route: 061
     Dates: start: 20190708, end: 20190717
  4. MOMETASONE FUROATE. [Suspect]
     Active Substance: MOMETASONE FUROATE
     Dosage: 1 APPLICATION, 1 DAY
     Route: 061
     Dates: start: 20200322
  5. HYDROCORTISONE ACETATE. [Suspect]
     Active Substance: HYDROCORTISONE ACETATE
     Dosage: 1 APPLICATION,IN 1 DAY
     Route: 061
     Dates: start: 20190718, end: 20200302
  6. TACROLIMUS. [Suspect]
     Active Substance: TACROLIMUS
     Indication: DERMATITIS ATOPIC
     Dosage: 1 APPLICATION, QD
     Route: 061
     Dates: start: 20190708, end: 20191028
  7. METHYLPREDNISOLONE ACEPONATE [Suspect]
     Active Substance: METHYLPREDNISOLONE ACEPONATE
     Indication: DERMATITIS ATOPIC
     Dosage: 1 APPLICATION, QD
     Route: 061
     Dates: start: 20190718, end: 20190801
  8. METHYLPREDNISOLONE ACEPONATE [Suspect]
     Active Substance: METHYLPREDNISOLONE ACEPONATE
     Dosage: 1 APPLICATION, QD
     Route: 061
     Dates: start: 20190902
  9. ZOCOR [Concomitant]
     Active Substance: SIMVASTATIN
     Indication: BLOOD CHOLESTEROL INCREASED
     Dosage: 5 MILLIGRAM, QD (5 MG, 1 IN 1 D)
     Route: 048
     Dates: start: 20191205
  10. PINETARSOL (COAL TAR (+) TROLAMINE LAURYL SULFATE) [Concomitant]
     Indication: DERMATITIS ATOPIC
     Dosage: 1 APPLICATION IN 1 DAY
     Route: 061
     Dates: start: 20200302
  11. AQUEOUS CREAM BP [Concomitant]
     Indication: SALVAGE THERAPY
     Dosage: 3 DOSAGE FORM, IN 1 DAY
     Route: 061
     Dates: start: 20190612
  12. UREA CREAM [Concomitant]
     Active Substance: UREA
     Indication: DERMATITIS ATOPIC
     Dosage: 3 APPLICATIONS, IN 1 DAY
     Route: 061
     Dates: start: 20200302
  13. COAL TAR (+) SALICYLIC ACID [Concomitant]
     Indication: DERMATITIS ATOPIC
     Dosage: 1 DOSAGE FORM
     Route: 061
     Dates: start: 20190302
  14. CLOTRIMAZOLE. [Concomitant]
     Active Substance: CLOTRIMAZOLE
     Indication: URINARY TRACT INFECTION FUNGAL
     Dosage: 100 MILLIGRAM, QD
     Route: 067
     Dates: start: 20200420

REACTIONS (1)
  - Herpes zoster [Not Recovered/Not Resolved]

NARRATIVE: CASE EVENT DATE: 20200818
